FAERS Safety Report 4358301-1 (Version None)
Quarter: 2004Q2

REPORT INFORMATION
  Report Type: 
  Country: None (occurrence: None)
  Receive Date: 20040511
  Receipt Date: 20040511
  Transmission Date: 20050107
  Serious: Yes (Life-Threatening, Hospitalization)
  Sender: FDA-Public Use
  Company Number: None

PATIENT
  Age: 52 Year
  Sex: Male
  Weight: 98.8 kg

DRUGS (11)
  1. ASPIRIN [Suspect]
  2. METFORMIN HCL [Concomitant]
  3. CITALOPRAN [Concomitant]
  4. COLONOSCOPY SOLU [Concomitant]
  5. OMEPRAZOLE [Concomitant]
  6. FLEETS ENEMA [Concomitant]
  7. CICLOPIROX OLAMINE [Concomitant]
  8. ALCOHOL PREP PADS [Concomitant]
  9. LANCETS [Concomitant]
  10. ONE TOUCH ULTRA TEST STRIPS [Concomitant]
  11. SILDENAFIL [Concomitant]

REACTIONS (2)
  - DIZZINESS [None]
  - FAECES DISCOLOURED [None]
